FAERS Safety Report 7949880-3 (Version None)
Quarter: 2011Q4

REPORT INFORMATION
  Report Type: 
  Country: None (occurrence: None)
  Receive Date: 20111130
  Receipt Date: 20111121
  Transmission Date: 20120403
  Serious: Yes (Other)
  Sender: FDA-Public Use
  Company Number: US-PFIZER INC-2011284949

PATIENT
  Sex: Female
  Weight: 81.633 kg

DRUGS (13)
  1. LISINOPRIL [Concomitant]
     Dosage: UNK
  2. PRILOSEC [Concomitant]
     Dosage: UNK
  3. HYDROCHLOROTHIAZIDE [Concomitant]
     Dosage: UNK
  4. FOLIC ACID [Concomitant]
     Dosage: UNK
  5. METHOTREXATE [Concomitant]
     Dosage: UNK
  6. METFORMIN [Concomitant]
     Dosage: UNK
  7. ATIVAN [Concomitant]
     Dosage: UNK
  8. TOVIAZ [Suspect]
     Dosage: 4 MG, UNK
  9. COREG [Concomitant]
     Dosage: UNK
  10. AMLODIPINE [Concomitant]
     Dosage: UNK
  11. TOVIAZ [Suspect]
     Indication: POLLAKIURIA
     Dosage: 8 MG, 2X/DAY
     Route: 048
     Dates: end: 20100101
  12. LEXAPRO [Concomitant]
     Dosage: UNK
  13. POTASSIUM CHLORIDE [Concomitant]
     Dosage: UNK

REACTIONS (5)
  - DEVICE INEFFECTIVE [None]
  - MEDICAL DEVICE IMPLANTATION [None]
  - DRY MOUTH [None]
  - DRUG EFFECT DECREASED [None]
  - DRY EYE [None]
